FAERS Safety Report 9711173 (Version 2)
Quarter: 2013Q4

REPORT INFORMATION
  Report Type: Spontaneous
  Country: US (occurrence: US)
  Receive Date: 20131126
  Receipt Date: 20131126
  Transmission Date: 20140711
  Serious: No
  Sender: FDA-Public Use
  Company Number: US-BRISTOL-MYERS SQUIBB COMPANY-19184746

PATIENT
  Age: 78 Year
  Sex: Male
  Weight: 94.78 kg

DRUGS (15)
  1. BYETTA [Suspect]
     Indication: TYPE 2 DIABETES MELLITUS
     Route: 058
  2. NIASPAN [Suspect]
     Indication: BLOOD CHOLESTEROL
     Route: 048
  3. LIPITOR [Suspect]
     Indication: BLOOD CHOLESTEROL
     Route: 048
  4. GLIMEPIRIDE [Concomitant]
  5. HYDROCHLOROTHIAZIDE [Concomitant]
     Dosage: HYDROCHLOROTHIAZIDE ACID CAPSULES.
  6. VITAMINS [Concomitant]
  7. LISINOPRIL [Concomitant]
     Dosage: 1 TABLET BY MOUTH EVERY DAY
     Route: 048
  8. TAMSULOSIN HCL [Concomitant]
     Dosage: 1 CAPSULE
  9. ASPIRIN [Concomitant]
     Dosage: LOW STRENGTH ONE A DAY.
  10. FOLIC ACID [Concomitant]
  11. FLOMAX [Concomitant]
  12. BABY ASPIRIN [Concomitant]
  13. LASIX [Concomitant]
  14. PLAVIX [Concomitant]
  15. NIASPAN [Concomitant]

REACTIONS (2)
  - Muscular weakness [Not Recovered/Not Resolved]
  - Pain in extremity [Not Recovered/Not Resolved]
